FAERS Safety Report 14232380 (Version 1)
Quarter: 2017Q4

REPORT INFORMATION
  Report Type: Spontaneous
  Country: US (occurrence: None)
  Receive Date: 20171127
  Receipt Date: 20171127
  Transmission Date: 20180321
  Serious: Yes (Hospitalization)
  Sender: FDA-Public Use
  Company Number: None

PATIENT
  Age: 66 Year
  Sex: Male
  Weight: 112.35 kg

DRUGS (2)
  1. SULFAMETHOXAZOLE/TRIMETHOPRIM [Suspect]
     Active Substance: SULFAMETHOXAZOLE\TRIMETHOPRIM
     Indication: HYPERTENSION
     Dosage: DOSE - 800/160MG
     Route: 048
     Dates: start: 20171010, end: 20171016
  2. SULFAMETHOXAZOLE/TRIMETHOPRIM [Suspect]
     Active Substance: SULFAMETHOXAZOLE\TRIMETHOPRIM
     Indication: URINARY TRACT INFECTION STAPHYLOCOCCAL
     Dosage: DOSE - 800/160MG
     Route: 048
     Dates: start: 20171010, end: 20171016

REACTIONS (1)
  - Hyperkalaemia [None]

NARRATIVE: CASE EVENT DATE: 20171021
